FAERS Safety Report 22050784 (Version 1)
Quarter: 2023Q1

REPORT INFORMATION
  Report Type: Spontaneous
  Country: US (occurrence: None)
  Receive Date: 20230228
  Receipt Date: 20230228
  Transmission Date: 20230418
  Serious: Yes (Disabling)
  Sender: FDA-Public Use
  Company Number: None

PATIENT
  Age: 76 Year
  Sex: Female
  Weight: 58.97 kg

DRUGS (12)
  1. SINGULAIR [Suspect]
     Active Substance: MONTELUKAST SODIUM
     Indication: Allergic sinusitis
     Dates: start: 20230115, end: 20230201
  2. ARIPIPRAZOLE [Concomitant]
     Active Substance: ARIPIPRAZOLE
  3. SERTRALINE [Concomitant]
     Active Substance: SERTRALINE HYDROCHLORIDE
  4. CARVEDILOL [Concomitant]
     Active Substance: CARVEDILOL
  5. UNSPECIFIED INGREDIENT [Concomitant]
     Active Substance: UNSPECIFIED INGREDIENT
  6. SIMVASTATIN [Concomitant]
     Active Substance: SIMVASTATIN
  7. LORATADINE [Concomitant]
     Active Substance: LORATADINE
  8. MUCINEX [Concomitant]
     Active Substance: GUAIFENESIN
  9. ESTRADIOL [Concomitant]
     Active Substance: ESTRADIOL
  10. AREDS 2 eye vitamins [Concomitant]
  11. Neil Med sinus rinse [Concomitant]
  12. Calcium citrate with D [Concomitant]

REACTIONS (6)
  - Personality change [None]
  - Logorrhoea [None]
  - Irritability [None]
  - Paranoia [None]
  - Regressive behaviour [None]
  - Memory impairment [None]

NARRATIVE: CASE EVENT DATE: 20230115
